FAERS Safety Report 9304091 (Version 1)
Quarter: 2013Q2

REPORT INFORMATION
  Report Type: Spontaneous
  Country: CA (occurrence: CA)
  Receive Date: 20130522
  Receipt Date: 20130522
  Transmission Date: 20140414
  Serious: Yes (Other)
  Sender: FDA-Public Use
  Company Number: CA-OTSUKA-US-2013-10962

PATIENT
  Age: 22 Month
  Sex: Female

DRUGS (7)
  1. BUSULFEX [Suspect]
     Indication: STEM CELL TRANSPLANT
     Route: 042
  2. CYCLOPHOSPHAMIDE [Concomitant]
     Indication: STEM CELL TRANSPLANT
     Route: 065
  3. ETOPOSIDE [Concomitant]
     Indication: STEM CELL TRANSPLANT
     Route: 065
  4. CYCLOSPORINE [Concomitant]
     Indication: PROPHYLAXIS AGAINST GRAFT VERSUS HOST DISEASE
     Route: 065
  5. METHOTREXATE SODIUM [Concomitant]
     Indication: PROPHYLAXIS AGAINST GRAFT VERSUS HOST DISEASE
  6. GANCICLOVIR [Concomitant]
     Indication: ANTIVIRAL PROPHYLAXIS
  7. PENICILLIN [Concomitant]
     Indication: ANTIBIOTIC PROPHYLAXIS

REACTIONS (3)
  - Venoocclusive disease [Unknown]
  - Renal failure acute [Unknown]
  - Hypertension [Unknown]
